FAERS Safety Report 4787410-8 (Version None)
Quarter: 2005Q4

REPORT INFORMATION
  Report Type: 
  Country: None (occurrence: None)
  Receive Date: 20051003
  Receipt Date: 20050920
  Transmission Date: 20060501
  Serious: Yes (Disabling)
  Sender: FDA-Public Use
  Company Number: 2005131129

PATIENT
  Age: 24 Year
  Sex: Female
  Weight: 54 kg

DRUGS (10)
  1. GENOTROPIN [Suspect]
     Indication: HYPOTHYROIDISM
     Dosage: SEE IMAGE
     Route: 058
     Dates: start: 20050804, end: 20050801
  2. GENOTROPIN [Suspect]
     Indication: HYPOTHYROIDISM
     Dosage: SEE IMAGE
     Route: 058
     Dates: start: 20050901, end: 20050901
  3. GENOTROPIN [Suspect]
     Indication: HYPOTHYROIDISM
     Dosage: SEE IMAGE
     Route: 058
     Dates: start: 20050901, end: 20050919
  4. GENOTROPIN [Suspect]
     Indication: HYPOTHYROIDISM
     Dosage: SEE IMAGE
     Route: 058
     Dates: start: 20050921
  5. AMOXICILLIN [Concomitant]
  6. CORTEF [Concomitant]
  7. LEVOTHYROXINE SODIUM [Concomitant]
  8. DESMOPRESSIN ACETATE (DESMOPRESSIN ACETATE) [Concomitant]
  9. SYSTEM (ESTRADIOL) [Concomitant]
  10. VITACALCIN (CALCIUM CARBONATE) [Concomitant]

REACTIONS (2)
  - HYPOACUSIS [None]
  - RESPIRATORY TRACT INFECTION [None]
